FAERS Safety Report 9567881 (Version 1)
Quarter: 2013Q3

REPORT INFORMATION
  Report Type: Spontaneous
  Country: US (occurrence: US)
  Receive Date: 20130930
  Receipt Date: 20130930
  Transmission Date: 20140515
  Serious: No
  Sender: FDA-Public Use
  Company Number: US-AMGEN-USASP2013019666

PATIENT
  Age: 73 Year
  Sex: Male
  Weight: 99.77 kg

DRUGS (8)
  1. ENBREL [Suspect]
     Indication: RHEUMATOID ARTHRITIS
     Dosage: 50 MG, ONCE A WEEK
     Route: 058
  2. CALTRATE                           /00944201/ [Concomitant]
     Dosage: 600 UNK, UNK
     Route: 048
  3. ECOTRIN [Concomitant]
     Dosage: 81 MG, UNK
     Route: 048
  4. AVODART [Concomitant]
     Dosage: 0.5 MG, UNK
     Route: 048
  5. TOPROL [Concomitant]
     Dosage: 50 MG, UNK
     Route: 048
  6. ATORVASTATIN [Concomitant]
     Dosage: 10 MG, UNK
     Route: 048
  7. FLAXSEED OIL [Concomitant]
     Dosage: UNK
     Route: 048
  8. CLOPIDOGREL [Concomitant]
     Dosage: 300 MG, UNK
     Route: 048

REACTIONS (1)
  - Nasopharyngitis [Unknown]
